FAERS Safety Report 8362016-2 (Version None)
Quarter: 2012Q2

REPORT INFORMATION
  Report Type: 
  Country: None (occurrence: None)
  Receive Date: 20120515
  Receipt Date: 20120510
  Transmission Date: 20120825
  Serious: Yes (Hospitalization, Other)
  Sender: FDA-Public Use
  Company Number: US-ABBOTT-11P-163-0842345-00

PATIENT
  Sex: Male
  Weight: 68.1 kg

DRUGS (2)
  1. APRISO [Concomitant]
     Indication: COLITIS ULCERATIVE
  2. HUMIRA [Suspect]
     Indication: COLITIS ULCERATIVE
     Dates: start: 20110701, end: 20111101

REACTIONS (7)
  - FREQUENT BOWEL MOVEMENTS [None]
  - OFF LABEL USE [None]
  - HAEMORRHAGE [None]
  - DRUG INEFFECTIVE [None]
  - COLITIS ULCERATIVE [None]
  - INCISION SITE INFECTION [None]
  - CONSTIPATION [None]
